FAERS Safety Report 12422064 (Version 1)
Quarter: 2016Q2

REPORT INFORMATION
  Report Type: Spontaneous
  Country: US (occurrence: AU)
  Receive Date: 20160531
  Receipt Date: 20160531
  Transmission Date: 20160815
  Serious: Yes (Hospitalization)
  Sender: FDA-Public Use
  Company Number: AU-FRI-1000082098

PATIENT
  Age: 5 Decade
  Sex: Male

DRUGS (4)
  1. SAPHRIS [Suspect]
     Active Substance: ASENAPINE MALEATE
     Indication: DEPRESSIVE DELUSION
     Dosage: 10 MG
     Route: 048
     Dates: start: 201506, end: 2015
  2. SAPHRIS [Suspect]
     Active Substance: ASENAPINE MALEATE
     Dosage: 20 MG
     Route: 048
     Dates: start: 2015, end: 2015
  3. SAPHRIS [Suspect]
     Active Substance: ASENAPINE MALEATE
     Route: 048
     Dates: start: 2015
  4. EFFEXOR [Concomitant]
     Active Substance: VENLAFAXINE HYDROCHLORIDE

REACTIONS (2)
  - Diabetes mellitus [Unknown]
  - Somnolence [Unknown]

NARRATIVE: CASE EVENT DATE: 2015
